FAERS Safety Report 9342459 (Version 6)
Quarter: 2014Q1

REPORT INFORMATION
  Report Type: Spontaneous
  Country: US (occurrence: US)
  Receive Date: 20130611
  Receipt Date: 20140313
  Transmission Date: 20141002
  Serious: Yes (Hospitalization, Other)
  Sender: FDA-Public Use
  Company Number: US-009507513-1306USA003434

PATIENT
  Sex: Female
  Weight: 50.79 kg

DRUGS (5)
  1. FOSAMAX [Suspect]
     Indication: PROPHYLAXIS
     Dosage: 70 MG, QW
     Route: 048
     Dates: start: 20020706, end: 20080408
  2. ALENDRONATE SODIUM [Suspect]
     Indication: PROPHYLAXIS
     Dosage: 70 MG, QW
  3. HYDROCHLOROTHIAZIDE (+) LISINOPRIL [Concomitant]
     Indication: HYPERTENSION
     Dosage: 12.5MG-20MG
     Dates: start: 2002
  4. AMLODIPINE BESYLATE [Concomitant]
     Indication: HYPERTENSION
     Dosage: 5 MG, UNK
     Dates: start: 2000
  5. SIMVASTATIN [Concomitant]
     Indication: BLOOD CHOLESTEROL INCREASED
     Dosage: 20 MG, UNK
     Dates: start: 2000

REACTIONS (23)
  - Femur fracture [Not Recovered/Not Resolved]
  - Intramedullary rod insertion [Unknown]
  - Femur fracture [Unknown]
  - Osteopenia [Unknown]
  - Groin pain [Recovered/Resolved]
  - Osteoporosis [Unknown]
  - Antinuclear antibody positive [Unknown]
  - Sciatica [Unknown]
  - Bursitis [Unknown]
  - Bone disorder [Unknown]
  - Biopsy breast [Unknown]
  - Tooth fracture [Unknown]
  - Tooth extraction [Unknown]
  - Contusion [Unknown]
  - Bruxism [Unknown]
  - Toothache [Unknown]
  - Oral herpes [Unknown]
  - Phlebolith [Unknown]
  - Oestrogen deficiency [Unknown]
  - Arthritis [Unknown]
  - Arthralgia [Unknown]
  - Arthralgia [Unknown]
  - Bone pain [Unknown]
